FAERS Safety Report 19012027 (Version 1)
Quarter: 2021Q1

REPORT INFORMATION
  Report Type: Spontaneous
  Country: QA (occurrence: QA)
  Receive Date: 20210316
  Receipt Date: 20210316
  Transmission Date: 20210420
  Serious: Yes (Hospitalization, Other)
  Sender: FDA-Public Use
  Company Number: QA-MACLEODS PHARMACEUTICALS US LTD-MAC2021030469

PATIENT

DRUGS (2)
  1. TRIAMCINOLONE ACETONIDE. [Suspect]
     Active Substance: TRIAMCINOLONE ACETONIDE
     Indication: OSTEOARTHRITIS
     Dosage: 40 MILLIGRAM, SINGLE, TOTAL, ULTRA?SOUND GUIDED, INJECTION
     Route: 014
  2. LEVOBUPIVACAINE [Concomitant]
     Active Substance: LEVOBUPIVACAINE
     Indication: OSTEOARTHRITIS
     Dosage: 3 MILLILITER, ULTRA?SOUND GUIDED
     Route: 014

REACTIONS (2)
  - Osteonecrosis [Recovering/Resolving]
  - Loss of personal independence in daily activities [Recovering/Resolving]
